FAERS Safety Report 9702652 (Version 2)
Quarter: 2013Q4

REPORT INFORMATION
  Report Type: Spontaneous
  Country: NL (occurrence: NL)
  Receive Date: 20131121
  Receipt Date: 20131121
  Transmission Date: 20140711
  Serious: Yes (Other)
  Sender: FDA-Public Use
  Company Number: NL-ACTAVIS-2013-19893

PATIENT
  Age: 65 Year
  Sex: Female

DRUGS (5)
  1. CYCLOSPORINE (UNKNOWN) [Suspect]
     Indication: PROPHYLAXIS AGAINST TRANSPLANT REJECTION
     Dosage: 300 MG, BID
     Route: 048
  2. CYCLOSPORINE (UNKNOWN) [Suspect]
     Dosage: 250 MG, BID
     Route: 048
  3. CYCLOSPORINE (UNKNOWN) [Suspect]
     Dosage: 100 MG, DAILY
     Route: 048
  4. CYCLOSPORINE (UNKNOWN) [Suspect]
     Dosage: 60 MG, Q24H
     Route: 042
  5. PREDNISOLONE [Concomitant]
     Indication: RENAL TRANSPLANT
     Dosage: UNK
     Route: 048

REACTIONS (2)
  - Blood creatinine increased [Recovered/Resolved]
  - Therapeutic response decreased [Unknown]
